FAERS Safety Report 17645696 (Version 1)
Quarter: 2020Q2

REPORT INFORMATION
  Report Type: Spontaneous
  Country: US (occurrence: US)
  Receive Date: 20200408
  Receipt Date: 20200408
  Transmission Date: 20200713
  Serious: Yes (Hospitalization, Other)
  Sender: FDA-Public Use
  Company Number: US-VIRTUS PHARMACEUTICALS, LLC-2020VTS00017

PATIENT
  Sex: Female
  Weight: 72.56 kg

DRUGS (6)
  1. MEDROXYPROGESTERONE [Suspect]
     Active Substance: MEDROXYPROGESTERONE
     Indication: HOT FLUSH
  2. BIO-IDENTICAL ESTROGEN [Suspect]
     Active Substance: ESTROGENS
     Dosage: UNK
     Dates: end: 2012
  3. CELEXA [Concomitant]
     Active Substance: CITALOPRAM HYDROBROMIDE
  4. PROMETRIUM [Suspect]
     Active Substance: PROGESTERONE
     Indication: HOT FLUSH
     Dosage: 200 MG, 1X/DAY IN THE EVENING
     Route: 048
     Dates: end: 202001
  5. PROGESTERONE (AKORN) [Suspect]
     Active Substance: PROGESTERONE
     Indication: HOT FLUSH
  6. VALACYCLOVIR [Concomitant]
     Active Substance: VALACYCLOVIR HYDROCHLORIDE

REACTIONS (10)
  - Gait disturbance [Unknown]
  - Product dose omission [Recovered/Resolved]
  - Performance status decreased [Unknown]
  - Headache [Unknown]
  - Hot flush [Not Recovered/Not Resolved]
  - Product substitution issue [Recovered/Resolved]
  - Drug ineffective for unapproved indication [Unknown]
  - Lyme disease [Unknown]
  - Staphylococcal infection [Unknown]
  - Hormone receptor positive breast cancer [Unknown]

NARRATIVE: CASE EVENT DATE: 2010
